FAERS Safety Report 8607871-3 (Version None)
Quarter: 2012Q3

REPORT INFORMATION
  Report Type: 
  Country: None (occurrence: None)
  Receive Date: 20120723
  Receipt Date: 20120711
  Transmission Date: 20120928
  Serious: Yes (Hospitalization)
  Sender: FDA-Public Use
  Company Number: AEUSA201200358

PATIENT
  Age: 74 Year
  Sex: Female

DRUGS (1)
  1. GAMUNEX [Suspect]
     Indication: PRIMARY IMMUNODEFICIENCY SYNDROME
     Dosage: 25 GM;QM;IV
     Route: 042
     Dates: start: 20120501, end: 20120601

REACTIONS (3)
  - CHILLS [None]
  - HYPOTENSION [None]
  - INFUSION RELATED REACTION [None]
